FAERS Safety Report 13555617 (Version 1)
Quarter: 2017Q2

REPORT INFORMATION
  Report Type: Other
  Country: CA (occurrence: CA)
  Receive Date: 20170517
  Receipt Date: 20170517
  Transmission Date: 20170830
  Serious: Yes (Other)
  Sender: FDA-Public Use
  Company Number: CA-SHIRE-CA201710900

PATIENT
  Sex: Male

DRUGS (1)
  1. VYVANSE [Suspect]
     Active Substance: LISDEXAMFETAMINE DIMESYLATE
     Indication: ATTENTION DEFICIT/HYPERACTIVITY DISORDER
     Dosage: 10 MG, UNKNOWN
     Route: 048
     Dates: start: 201703

REACTIONS (6)
  - Loss of consciousness [Unknown]
  - Aggression [Unknown]
  - Drug ineffective [Unknown]
  - Impulsive behaviour [Unknown]
  - Product use issue [Unknown]
  - Psychomotor hyperactivity [Unknown]
